FAERS Safety Report 4847031-5 (Version None)
Quarter: 2005Q4

REPORT INFORMATION
  Report Type: 
  Country: None (occurrence: None)
  Receive Date: 20051207
  Receipt Date: 20051129
  Transmission Date: 20060501
  Serious: Yes (Other)
  Sender: FDA-Public Use
  Company Number: US-JNJFOC-20050804431

PATIENT
  Sex: Male

DRUGS (9)
  1. TOPAMAX [Suspect]
     Indication: ESSENTIAL TREMOR
     Dosage: 30 MG IN AM, 15 MG AT NOON, AND 15 MG PM
     Route: 048
  2. METFORMIN [Concomitant]
  3. HUMALOG INSULIN 75/25 [Concomitant]
     Dosage: 55 MG AM AND 40 MG PM
     Route: 050
  4. NIFEDIPINE [Concomitant]
  5. ZOCOR [Concomitant]
  6. TOPROL-XL [Concomitant]
  7. GLIPIZIDE [Concomitant]
  8. BENICAR [Concomitant]
  9. PRILOSEC [Concomitant]

REACTIONS (1)
  - APLASTIC ANAEMIA [None]
